FAERS Safety Report 16037744 (Version 1)
Quarter: 2019Q1

REPORT INFORMATION
  Report Type: Spontaneous
  Country: US (occurrence: US)
  Receive Date: 20190305
  Receipt Date: 20190305
  Transmission Date: 20190418
  Serious: Yes (Death)
  Sender: FDA-Public Use
  Company Number: US-JIANGSU HENGRUI MEDICINE CO., LTD.-2063572

PATIENT
  Age: 17 Year
  Sex: Female
  Weight: 65 kg

DRUGS (31)
  1. HYDRALAZINE [Concomitant]
     Active Substance: HYDRALAZINE HYDROCHLORIDE
  2. VORICONAZOLE. [Concomitant]
     Active Substance: VORICONAZOLE
  3. OLANZAPINE KCENTRA [Concomitant]
     Active Substance: OLANZAPINE
  4. ACETAZOLAMIDE. [Concomitant]
     Active Substance: ACETAZOLAMIDE
  5. METRONIDAZOLE. [Concomitant]
     Active Substance: METRONIDAZOLE
  6. DIAZEPAM. [Concomitant]
     Active Substance: DIAZEPAM
  7. HYDROMORPHONE HYDROCHLORIDE. [Concomitant]
     Active Substance: HYDROMORPHONE HYDROCHLORIDE
  8. MICAFUNGIN. [Concomitant]
     Active Substance: MICAFUNGIN SODIUM
  9. ISRADIPINE. [Concomitant]
     Active Substance: ISRADIPINE
  10. ALLOPURINOL. [Concomitant]
     Active Substance: ALLOPURINOL
  11. VANCOMYCIN HYDROCHLORIDE. [Concomitant]
     Active Substance: VANCOMYCIN HYDROCHLORIDE
  12. FLUDARABINE [Suspect]
     Active Substance: FLUDARABINE PHOSPHATE
  13. TPN [Concomitant]
     Active Substance: AMINO ACIDS\DEXTROSE\ELECTROLYTES NOS\SOYBEAN OIL
  14. MORPHINE [Concomitant]
     Active Substance: MORPHINE
  15. SENNA [Concomitant]
     Active Substance: SENNA LEAF\SENNOSIDES\SENNOSIDES A AND B
  16. RASBURICASE [Concomitant]
     Active Substance: RASBURICASE
  17. GABAPENTIN. [Concomitant]
     Active Substance: GABAPENTIN
  18. LABETALOL [Concomitant]
     Active Substance: LABETALOL\LABETALOL HYDROCHLORIDE
  19. DEXMEDETOMIDINE. [Concomitant]
     Active Substance: DEXMEDETOMIDINE
  20. KYMRIAH [Suspect]
     Active Substance: TISAGENLECLEUCEL
  21. FUROSEMIDE. [Concomitant]
     Active Substance: FUROSEMIDE
  22. VITAMIN K [Concomitant]
     Active Substance: PHYTONADIONE
  23. ACYCLOVIR. [Concomitant]
     Active Substance: ACYCLOVIR
  24. CEFEPIME [Concomitant]
     Active Substance: CEFEPIME HYDROCHLORIDE
  25. PANTOPRAZOLE [Concomitant]
     Active Substance: PANTOPRAZOLE
  26. ACYCLOVIR. [Concomitant]
     Active Substance: ACYCLOVIR
  27. CYCLOPHOSPHAMIDE FOR INJECTION USP, 500 MG, 1 G AND 2 G PER SINGLE-DOS [Suspect]
     Active Substance: CYCLOPHOSPHAMIDE
     Indication: ACUTE LYMPHOCYTIC LEUKAEMIA
  28. VINCRISTINE SULFATE. [Suspect]
     Active Substance: VINCRISTINE SULFATE
  29. LEVETIRACETAM AMINOCAPROIC ACID [Concomitant]
  30. NICARDIPINE HYDROCHLORIDE. [Concomitant]
     Active Substance: NICARDIPINE HYDROCHLORIDE
  31. POPERACILLIN/TAZOBACTAM [Concomitant]

REACTIONS (5)
  - Subarachnoid haemorrhage [None]
  - Intraventricular haemorrhage [None]
  - Thrombocytopenia [None]
  - Neurotoxicity [None]
  - Cytokine release syndrome [None]
